FAERS Safety Report 4345352-6 (Version None)
Quarter: 2004Q2

REPORT INFORMATION
  Report Type: 
  Country: None (occurrence: None)
  Receive Date: 20040422
  Receipt Date: 20040422
  Transmission Date: 20050107
  Serious: Yes (Hospitalization)
  Sender: FDA-Public Use
  Company Number: None

PATIENT
  Sex: Male
  Weight: 95.2554 kg

DRUGS (10)
  1. ROCEPHIN [Suspect]
     Indication: ENDOCARDITIS
     Dosage: 2 GM ONCE DAILY INTRAVENOUS
     Route: 042
     Dates: start: 20040325, end: 20040413
  2. ALLOPURINOL TAB [Concomitant]
  3. ALTACE [Concomitant]
  4. IMDUR [Concomitant]
  5. ROCEPHIN [Concomitant]
  6. K-DUR 10 [Concomitant]
  7. LASIX [Concomitant]
  8. TENORMIN [Concomitant]
  9. HEPARIN [Concomitant]
  10. SODIUM CHLORIDE [Concomitant]

REACTIONS (1)
  - PANCREATITIS ACUTE [None]
